FAERS Safety Report 6913887-5 (Version None)
Quarter: 2010Q3

REPORT INFORMATION
  Report Type: 
  Country: None (occurrence: None)
  Receive Date: 20100809
  Receipt Date: 20100728
  Transmission Date: 20110219
  Serious: Yes (Other)
  Sender: FDA-Public Use
  Company Number: JP-ROCHE-719224

PATIENT
  Age: 50 Year
  Sex: Male

DRUGS (4)
  1. AVASTIN [Suspect]
     Indication: RECTAL CANCER METASTATIC
     Dosage: DOSAGE UNCERTAIN
     Route: 041
  2. ELPLAT [Concomitant]
     Dosage: DOSAGE UNCERTAIN
     Route: 041
  3. FLUOROURACIL [Concomitant]
     Dosage: DOSAGE UNCERTAIN
     Route: 041
  4. CALCIUM LEVOFOLINATE [Concomitant]
     Dosage: DOSAGE UNCERTAIN
     Route: 041

REACTIONS (2)
  - HELICOBACTER INFECTION [None]
  - IDIOPATHIC THROMBOCYTOPENIC PURPURA [None]
